FAERS Safety Report 12355828 (Version 2)
Quarter: 2016Q3

REPORT INFORMATION
  Report Type: Spontaneous
  Country: IT (occurrence: IT)
  Receive Date: 20160511
  Receipt Date: 20160707
  Transmission Date: 20161109
  Serious: Yes (Life-Threatening)
  Sender: FDA-Public Use
  Company Number: IT-BAYER-2016-089266

PATIENT
  Age: 64 Year
  Sex: Male

DRUGS (5)
  1. METFORMIN [Concomitant]
     Active Substance: METFORMIN HYDROCHLORIDE
     Dosage: DAILY DOSE 1700 MG
     Route: 048
  2. NEXAVAR [Suspect]
     Active Substance: SORAFENIB
     Indication: HEPATOCELLULAR CARCINOMA
     Dosage: DAILY DOSE 400 MG
     Route: 048
     Dates: start: 20160302, end: 20160417
  3. CARVEDILOL. [Concomitant]
     Active Substance: CARVEDILOL
     Dosage: DAILY DOSE 12.5 MG
     Route: 048
     Dates: start: 20160407, end: 20160504
  4. VALSARTAN. [Concomitant]
     Active Substance: VALSARTAN
     Dosage: DAILY DOSE 160 MG
     Route: 048
  5. INSULIN [Concomitant]
     Active Substance: INSULIN NOS
     Dosage: DAILY DOSE 56 IU

REACTIONS (4)
  - Blood creatinine increased [Unknown]
  - Acute kidney injury [Unknown]
  - Abnormal weight gain [Unknown]
  - Gravitational oedema [Unknown]

NARRATIVE: CASE EVENT DATE: 20160417
